FAERS Safety Report 4533584-3 (Version None)
Quarter: 2004Q4

REPORT INFORMATION
  Report Type: 
  Country: None (occurrence: None)
  Receive Date: 20041221
  Receipt Date: 20041129
  Transmission Date: 20050328
  Serious: Yes (Hospitalization, Other)
  Sender: FDA-Public Use
  Company Number: PHBS2004JP16154

PATIENT
  Age: 44 Year
  Sex: Male
  Weight: 57 kg

DRUGS (9)
  1. NEORAL [Suspect]
     Indication: STEM CELL TRANSPLANT
     Dosage: UNK, UNK
     Route: 048
     Dates: start: 20040122, end: 20040101
  2. NEORAL [Suspect]
     Dosage: UNK, UNK
     Route: 048
     Dates: start: 20040101, end: 20040101
  3. NEORAL [Suspect]
     Dosage: 100 MG/D
     Route: 048
     Dates: start: 20040101, end: 20040318
  4. NEORAL [Suspect]
     Dosage: 400 MG/D
     Route: 048
     Dates: start: 20040420, end: 20040831
  5. SANDIMMUNE [Concomitant]
     Indication: STEM CELL TRANSPLANT
     Dosage: 177 MG/D
     Dates: start: 20040120, end: 20040121
  6. CRAVIT [Concomitant]
     Indication: INFECTION PROPHYLAXIS
     Dosage: UNK, UNK
     Dates: start: 20041118, end: 20041202
  7. FLUDARABINE PHOSPHATE [Concomitant]
     Indication: STEM CELL TRANSPLANT
     Dosage: 49 MG/D
     Dates: start: 20040113, end: 20040118
  8. BUSULFAN [Concomitant]
     Indication: BLOOD STEM CELL HARVEST
     Dates: start: 20040115, end: 20040116
  9. ATGAM [Concomitant]
     Indication: STEM CELL TRANSPLANT

REACTIONS (15)
  - ATELECTASIS [None]
  - BACK PAIN [None]
  - C-REACTIVE PROTEIN INCREASED [None]
  - CHEST PAIN [None]
  - CHEST X-RAY ABNORMAL [None]
  - COMPUTERISED TOMOGRAM ABNORMAL [None]
  - COUGH [None]
  - DYSPNOEA [None]
  - DYSPNOEA EXERTIONAL [None]
  - GRAFT VERSUS HOST DISEASE [None]
  - HAEMOPTYSIS [None]
  - HAEMOTHORAX [None]
  - MALIGNANT NEOPLASM PROGRESSION [None]
  - PLEURAL EFFUSION [None]
  - PYREXIA [None]
